FAERS Safety Report 7937524-6 (Version None)
Quarter: 2011Q4

REPORT INFORMATION
  Report Type: 
  Country: None (occurrence: None)
  Receive Date: 20111123
  Receipt Date: 20111114
  Transmission Date: 20120403
  Serious: Yes (Other)
  Sender: FDA-Public Use
  Company Number: US-BAYER-2011-037113

PATIENT
  Age: 43 Year
  Sex: Female

DRUGS (4)
  1. FLEXERIL [Concomitant]
     Route: 048
  2. YAZ [Suspect]
     Indication: ACNE
     Dosage: UNK
     Dates: start: 20080521, end: 20080708
  3. NAPROSYN [Concomitant]
     Indication: PAIN
     Dosage: UNK UNK, PRN
     Route: 048
     Dates: start: 20080601
  4. YAZ [Suspect]
     Indication: PREMENSTRUAL SYNDROME

REACTIONS (10)
  - BACK PAIN [None]
  - FEAR [None]
  - DYSARTHRIA [None]
  - PAIN [None]
  - OEDEMA PERIPHERAL [None]
  - SKIN DISCOLOURATION [None]
  - VIITH NERVE PARALYSIS [None]
  - DEEP VEIN THROMBOSIS [None]
  - INJURY [None]
  - EMOTIONAL DISTRESS [None]
